FAERS Safety Report 9098449 (Version 2)
Quarter: 2013Q2

REPORT INFORMATION
  Report Type: Report from Study
  Country: US (occurrence: US)
  Receive Date: 20130213
  Receipt Date: 20130628
  Transmission Date: 20140414
  Serious: Yes (Hospitalization)
  Sender: FDA-Public Use
  Company Number: PHEH2013US003240

PATIENT
  Age: 35 Year
  Sex: Female
  Weight: 89 kg

DRUGS (2)
  1. GILENYA [Suspect]
     Indication: MULTIPLE SCLEROSIS
     Dosage: 0.5 MG, QD
     Route: 048
     Dates: start: 20130206, end: 20130208
  2. CELEXA [Concomitant]
     Indication: DEPRESSION
     Dosage: UNK UKN, QD
     Route: 048
     Dates: start: 2011

REACTIONS (4)
  - Blood pressure decreased [Recovered/Resolved]
  - Sinus bradycardia [Recovered/Resolved]
  - Listless [Unknown]
  - Fatigue [Unknown]
